FAERS Safety Report 5948356-2 (Version None)
Quarter: 2008Q4

REPORT INFORMATION
  Report Type: 
  Country: None (occurrence: None)
  Receive Date: 20081110
  Receipt Date: 20081110
  Transmission Date: 20090506
  Serious: Yes (Life-Threatening, Hospitalization)
  Sender: FDA-Public Use
  Company Number: None

PATIENT
  Age: 68 Year
  Sex: Female
  Weight: 80.7403 kg

DRUGS (1)
  1. AVELOX [Suspect]
     Indication: UPPER RESPIRATORY TRACT INFECTION
     Dosage: 1 PILL -400MG- 10 PILLS ONE TIME PER DAY PO
     Route: 048
     Dates: start: 20080215, end: 20080220

REACTIONS (13)
  - APHAGIA [None]
  - BLOOD PRESSURE INCREASED [None]
  - CONFUSIONAL STATE [None]
  - CONVULSION [None]
  - DISORIENTATION [None]
  - DOCUMENTED HYPERSENSITIVITY TO ADMINISTERED DRUG [None]
  - DYSPHAGIA [None]
  - DYSPNOEA [None]
  - HEART RATE INCREASED [None]
  - PNEUMONIA [None]
  - RESPIRATORY ARREST [None]
  - SOMNOLENCE [None]
  - SPEECH DISORDER [None]
